FAERS Safety Report 8499274-X (Version None)
Quarter: 2012Q3

REPORT INFORMATION
  Report Type: 
  Country: None (occurrence: None)
  Receive Date: 20120710
  Receipt Date: 20120702
  Transmission Date: 20120928
  Serious: Yes (Death, Hospitalization)
  Sender: FDA-Public Use
  Company Number: DE-GENZYME-CAMP-1001409

PATIENT
  Sex: Male
  Weight: 60 kg

DRUGS (20)
  1. DOXORUBICIN HCL [Suspect]
     Indication: PERIPHERAL T-CELL LYMPHOMA UNSPECIFIED
     Dosage: 92 MG, UNK
     Route: 042
     Dates: start: 20100107, end: 20100107
  2. PEGFILGRASTIM [Suspect]
     Dosage: 6 MG, ONCE
     Route: 058
     Dates: start: 20100301, end: 20100301
  3. ZIENAM [Concomitant]
     Indication: PENILE OEDEMA
  4. CYCLOPHOSPHAMIDE [Suspect]
     Dosage: 690 MG, ONCE
     Route: 042
     Dates: start: 20100222, end: 20100222
  5. CAMPATH [Suspect]
     Indication: PERIPHERAL T-CELL LYMPHOMA UNSPECIFIED
     Dosage: 30 MG, QD
     Route: 058
     Dates: start: 20100107, end: 20100108
  6. VINCRISTINE [Suspect]
     Dosage: 2 MG, QD
     Route: 040
     Dates: start: 20100222, end: 20100222
  7. VASOPRESSIN [Suspect]
     Indication: BLOOD PRESSURE MANAGEMENT
     Dosage: UNK
     Route: 065
  8. POSACONAZOLE [Concomitant]
     Indication: PROPHYLAXIS
     Dosage: UNK
     Route: 065
  9. VINCRISTINE [Suspect]
     Indication: PERIPHERAL T-CELL LYMPHOMA UNSPECIFIED
     Dosage: 2 MG, UNK
     Route: 042
     Dates: start: 20100107, end: 20100107
  10. CYCLOPHOSPHAMIDE [Suspect]
     Indication: PERIPHERAL T-CELL LYMPHOMA UNSPECIFIED
     Dosage: 1380 MG, UNK
     Route: 042
     Dates: start: 20100107, end: 20100107
  11. DOXORUBICIN HCL [Suspect]
     Dosage: 46 MG, ONCE
     Route: 042
     Dates: start: 20100222, end: 20100222
  12. TARANIC [Concomitant]
     Indication: PENILE OEDEMA
  13. ZIENAM [Concomitant]
     Indication: ERYSIPELAS
  14. CAMPATH [Suspect]
     Dosage: 30 MG, QD
     Route: 058
     Dates: start: 20100222, end: 20100223
  15. PREDNISONE [Suspect]
     Indication: PERIPHERAL T-CELL LYMPHOMA UNSPECIFIED
     Dosage: 100 MG, UNK
     Route: 048
     Dates: start: 20100107, end: 20100111
  16. PREDNISONE [Suspect]
     Dosage: 100 MG, QDX5
     Route: 048
     Dates: start: 20100222, end: 20100226
  17. PEGFILGRASTIM [Suspect]
     Indication: PERIPHERAL T-CELL LYMPHOMA UNSPECIFIED
     Dosage: 3 MG, QD
     Route: 058
  18. TARANIC [Concomitant]
     Indication: ERYSIPELAS
     Dosage: UNK
     Route: 065
  19. CANDIOHERMAL [Concomitant]
     Indication: ERYSIPELAS
  20. CANDIOHERMAL [Concomitant]
     Indication: PENILE OEDEMA

REACTIONS (13)
  - SEPTIC SHOCK [None]
  - ATRIAL FIBRILLATION [None]
  - LACTIC ACIDOSIS [None]
  - SKIN LESION [None]
  - BRONCHOPNEUMONIA [None]
  - RESPIRATORY DISTRESS [None]
  - PSEUDOMONAL SEPSIS [None]
  - FEBRILE NEUTROPENIA [None]
  - CANDIDA PNEUMONIA [None]
  - RESPIRATORY FAILURE [None]
  - TRACHEITIS [None]
  - GENERAL PHYSICAL HEALTH DETERIORATION [None]
  - TACHYCARDIA [None]
